FAERS Safety Report 6996418-3 (Version None)
Quarter: 2010Q3

REPORT INFORMATION
  Report Type: 
  Country: None (occurrence: None)
  Receive Date: 20100918
  Receipt Date: 20090424
  Transmission Date: 20110219
  Serious: No
  Sender: FDA-Public Use
  Company Number: US-WYE-H08547509

PATIENT
  Age: 28 Year
  Sex: Female
  Weight: 63.56 kg

DRUGS (5)
  1. EFFEXOR XR [Suspect]
     Indication: DEPRESSION
     Route: 048
     Dates: start: 20070101, end: 20090201
  2. EFFEXOR XR [Suspect]
     Indication: ANXIETY
     Route: 048
     Dates: start: 20090201, end: 20090201
  3. EFFEXOR XR [Suspect]
     Dosage: A SLOWER TAPER OVER TWO WEEKS
     Route: 048
     Dates: start: 20090201, end: 20090101
  4. SERTRALINE HYDROCHLORIDE [Concomitant]
     Dates: start: 20090201, end: 20090101
  5. SERTRALINE HYDROCHLORIDE [Concomitant]
     Dates: start: 20090101

REACTIONS (11)
  - ABDOMINAL PAIN UPPER [None]
  - ANXIETY [None]
  - DIZZINESS [None]
  - DRUG WITHDRAWAL SYNDROME [None]
  - DYSPNOEA [None]
  - HYPERHIDROSIS [None]
  - INSOMNIA [None]
  - NAUSEA [None]
  - PANIC REACTION [None]
  - THINKING ABNORMAL [None]
  - UNEVALUABLE EVENT [None]
